FAERS Safety Report 7458148-3 (Version None)
Quarter: 2011Q2

REPORT INFORMATION
  Report Type: 
  Country: None (occurrence: None)
  Receive Date: 20110504
  Receipt Date: 20110421
  Transmission Date: 20111010
  Serious: No
  Sender: FDA-Public Use
  Company Number: US-B.I. PHARMACEUTICALS,INC./RIDGEFIELD-2011-BP-11445BP

PATIENT
  Sex: Female

DRUGS (4)
  1. MULTAQ [Concomitant]
     Indication: ATRIAL FIBRILLATION
  2. SYNTHROID [Concomitant]
     Indication: HYPOTHYROIDISM
  3. PREMARIN [Concomitant]
     Indication: POSTMENOPAUSE
  4. PRADAXA [Suspect]
     Indication: ATRIAL FIBRILLATION
     Dosage: 300 MG
     Route: 048
     Dates: start: 20101215

REACTIONS (1)
  - MUSCULAR WEAKNESS [None]
